FAERS Safety Report 8888720 (Version 2)
Quarter: 2012Q4

REPORT INFORMATION
  Report Type: Report from Study
  Country: IE (occurrence: IE)
  Receive Date: 20121106
  Receipt Date: 20121112
  Transmission Date: 20130627
  Serious: Yes (Other)
  Sender: FDA-Public Use
  Company Number: IE-GLAXOSMITHKLINE-B0841730A

PATIENT
  Age: 70 Year
  Sex: Female
  Weight: 80 kg

DRUGS (10)
  1. LAPATINIB [Suspect]
     Indication: BREAST NEOPLASM
     Dosage: 1000MG Per day
     Route: 048
     Dates: start: 20121019, end: 20121025
  2. TAXOTERE [Suspect]
     Indication: BREAST NEOPLASM
     Dosage: 140MG per day
     Route: 042
     Dates: start: 20121019, end: 20121019
  3. CARBOPLATIN [Suspect]
     Indication: BREAST NEOPLASM
     Dosage: 560MG per day
     Route: 042
     Dates: start: 20121019, end: 20121019
  4. HERCEPTIN [Suspect]
     Indication: BREAST NEOPLASM
     Dosage: 630MG per day
     Route: 042
     Dates: start: 20121019, end: 20121019
  5. DEXAMETHASONE [Concomitant]
     Indication: PROPHYLAXIS
     Dosage: 16MG per day
     Route: 048
     Dates: start: 20121018, end: 20121020
  6. ONDANSETRON [Concomitant]
     Indication: PROPHYLAXIS
     Dosage: 16MG per day
     Dates: start: 20121023, end: 20121025
  7. MOTILIUM [Concomitant]
     Indication: PROPHYLAXIS
     Dosage: 80MG per day
     Route: 048
     Dates: start: 20121023, end: 20121103
  8. MYCOSTATIN [Concomitant]
     Indication: PROPHYLAXIS
     Dosage: 4ML per day
     Route: 048
     Dates: start: 20121019
  9. NEULASTA [Concomitant]
     Indication: PROPHYLAXIS
     Dosage: 6MG per day
     Route: 058
     Dates: start: 20121020, end: 20121020
  10. SERTRALINE [Concomitant]
     Indication: DEPRESSION
     Dosage: 50MG per day
     Route: 048
     Dates: start: 20121019

REACTIONS (4)
  - Diarrhoea [Recovered/Resolved]
  - Vomiting [Recovered/Resolved]
  - Abdominal pain [Recovered/Resolved]
  - Rectal haemorrhage [Recovered/Resolved]
